FAERS Safety Report 8108353-8 (Version None)
Quarter: 2012Q1

REPORT INFORMATION
  Report Type: 
  Country: None (occurrence: None)
  Receive Date: 20120202
  Receipt Date: 20120126
  Transmission Date: 20120608
  Serious: Yes (Other)
  Sender: FDA-Public Use
  Company Number: PHHY2011CA95582

PATIENT
  Sex: Female

DRUGS (4)
  1. VITAMIN D [Concomitant]
  2. AMANTADINE HCL [Concomitant]
  3. GILENYA [Suspect]
     Indication: RELAPSING-REMITTING MULTIPLE SCLEROSIS
     Dosage: 0.5 MG, QD
     Route: 048
     Dates: start: 20111012
  4. EFFEXOR [Concomitant]

REACTIONS (7)
  - HAEMORRHAGE [None]
  - NIGHT SWEATS [None]
  - FATIGUE [None]
  - DIARRHOEA [None]
  - DIZZINESS [None]
  - MENORRHAGIA [None]
  - PAIN [None]
